FAERS Safety Report 4893793-0 (Version None)
Quarter: 2005Q4

REPORT INFORMATION
  Report Type: 
  Country: None (occurrence: None)
  Receive Date: 20051223
  Receipt Date: 20051120
  Transmission Date: 20060501
  Serious: No
  Sender: FDA-Public Use
  Company Number: 2005PV004584

PATIENT
  Age: 43 Year
  Sex: Female
  Weight: 73.0291 kg

DRUGS (3)
  1. SYMLIN [Suspect]
     Indication: DIABETES MELLITUS INSULIN-DEPENDENT
     Dosage: 30 MCG;TID;SC, 15 MCG;TID;SC
     Route: 058
     Dates: start: 20051009, end: 20051103
  2. SYMLIN [Suspect]
     Indication: DIABETES MELLITUS INSULIN-DEPENDENT
     Dosage: 30 MCG;TID;SC, 15 MCG;TID;SC
     Route: 058
     Dates: start: 20051104
  3. INSULIN PUMP [Concomitant]

REACTIONS (2)
  - BLOOD GLUCOSE INCREASED [None]
  - NAUSEA [None]
